FAERS Safety Report 7733825-5 (Version None)
Quarter: 2011Q3

REPORT INFORMATION
  Report Type: 
  Country: None (occurrence: None)
  Receive Date: 20110906
  Receipt Date: 20110906
  Transmission Date: 20111222
  Serious: Yes (Other)
  Sender: FDA-Public Use
  Company Number: None

PATIENT
  Sex: Female
  Weight: 56.6996 kg

DRUGS (2)
  1. VENLAFAXINE HCL [Suspect]
     Indication: SYNCOPE
     Dosage: 37.5 MG, 75 MG, 150 MG VARIED (1-2/DAY) ORAL - ORY
     Route: 048
     Dates: start: 20110120, end: 20110803
  2. VENLAFAXINE HCL [Suspect]
     Indication: HYPOTENSION
     Dosage: 37.5 MG, 75 MG, 150 MG VARIED (1-2/DAY) ORAL - ORY
     Route: 048
     Dates: start: 20110120, end: 20110803

REACTIONS (11)
  - DIZZINESS [None]
  - PAIN [None]
  - FATIGUE [None]
  - NAUSEA [None]
  - COGNITIVE DISORDER [None]
  - SYNCOPE [None]
  - MYALGIA [None]
  - BLOOD PRESSURE DECREASED [None]
  - HEADACHE [None]
  - PRODUCT SUBSTITUTION ISSUE [None]
  - VOMITING [None]
